FAERS Safety Report 11995054 (Version 1)
Quarter: 2016Q1

REPORT INFORMATION
  Report Type: Spontaneous
  Country: RU (occurrence: RU)
  Receive Date: 20160203
  Receipt Date: 20160203
  Transmission Date: 20160526
  Serious: Yes (Life-Threatening, Hospitalization)
  Sender: FDA-Public Use
  Company Number: RU-TEVA-628750ISR

PATIENT
  Age: 47 Year
  Sex: Male

DRUGS (1)
  1. LINEZOLID-TEVA [Suspect]
     Active Substance: LINEZOLID
     Route: 042

REACTIONS (2)
  - Thrombocytopenia [Recovering/Resolving]
  - Subcutaneous haematoma [Recovering/Resolving]
